FAERS Safety Report 4928106-9 (Version None)
Quarter: 2006Q1

REPORT INFORMATION
  Report Type: 
  Country: None (occurrence: None)
  Receive Date: 20060223
  Receipt Date: 20060210
  Transmission Date: 20060701
  Serious: Yes (Death)
  Sender: FDA-Public Use
  Company Number: MK200602-0120-1

PATIENT
  Age: 68 Year
  Sex: Male

DRUGS (2)
  1. OPTIRAY 320 [Suspect]
     Indication: ABDOMEN SCAN
     Dosage: 65ML, IA , ONCE
     Route: 013
     Dates: start: 20060201, end: 20060201
  2. OPTIRAY 320 [Suspect]
     Indication: COMPUTERISED TOMOGRAM
     Dosage: 65ML, IA , ONCE
     Route: 013
     Dates: start: 20060201, end: 20060201

REACTIONS (5)
  - AORTIC ANEURYSM RUPTURE [None]
  - APNOEA [None]
  - CARDIO-RESPIRATORY ARREST [None]
  - FEELING HOT [None]
  - PROCEDURAL COMPLICATION [None]
